FAERS Safety Report 8021587-6 (Version None)
Quarter: 2012Q1

REPORT INFORMATION
  Report Type: 
  Country: None (occurrence: None)
  Receive Date: 20120104
  Receipt Date: 20111227
  Transmission Date: 20120608
  Serious: Yes (Other)
  Sender: FDA-Public Use
  Company Number: US-SANOFI-AVENTIS-2011SA051172

PATIENT
  Age: 83 Year
  Sex: Male
  Weight: 79 kg

DRUGS (3)
  1. PLAVIX [Concomitant]
  2. MULTAQ [Suspect]
     Indication: ATRIAL FIBRILLATION
     Route: 048
     Dates: start: 20110401, end: 20110701
  3. ASPIRIN [Concomitant]
     Dosage: HALF TABLET

REACTIONS (2)
  - ATRIAL FIBRILLATION [None]
  - RENAL IMPAIRMENT [None]
